FAERS Safety Report 7597867-5 (Version None)
Quarter: 2011Q3

REPORT INFORMATION
  Report Type: 
  Country: None (occurrence: None)
  Receive Date: 20110708
  Receipt Date: 20110627
  Transmission Date: 20111222
  Serious: Yes (Hospitalization)
  Sender: FDA-Public Use
  Company Number: US-MERCK-1103USA02677

PATIENT
  Age: 57 Year
  Sex: Female
  Weight: 74 kg

DRUGS (5)
  1. FOSAMAX [Suspect]
     Indication: OSTEOPENIA
     Route: 048
     Dates: start: 19950101, end: 20100101
  2. STROVITE [Concomitant]
     Route: 048
  3. HORMONES (UNSPECIFIED) [Concomitant]
     Route: 065
     Dates: start: 19900101, end: 19950101
  4. SELECTIVE ESTROGEN RECEPTOR MODULATOR (UNSPECIFIED) [Concomitant]
     Route: 065
     Dates: start: 19950101, end: 20010101
  5. FOSAMAX [Suspect]
     Indication: OSTEOPOROSIS
     Route: 048
     Dates: start: 19950101, end: 20100101

REACTIONS (15)
  - GAIT DISTURBANCE [None]
  - ANXIETY [None]
  - HEADACHE [None]
  - LOW TURNOVER OSTEOPATHY [None]
  - FOOT FRACTURE [None]
  - BURSITIS [None]
  - TENDONITIS [None]
  - IMPAIRED HEALING [None]
  - PNEUMONIA [None]
  - HYPERTENSION [None]
  - PAIN IN EXTREMITY [None]
  - FEMUR FRACTURE [None]
  - HYPERCHOLESTEROLAEMIA [None]
  - VITAMIN D DECREASED [None]
  - SLEEP APNOEA SYNDROME [None]
